FAERS Safety Report 13691757 (Version 2)
Quarter: 2017Q3

REPORT INFORMATION
  Report Type: Spontaneous
  Country: US (occurrence: US)
  Receive Date: 20170626
  Receipt Date: 20170720
  Transmission Date: 20171127
  Serious: Yes (Other)
  Sender: FDA-Public Use
  Company Number: US-ALLERGAN-1726220US

PATIENT
  Age: 56 Year
  Sex: Female
  Weight: 57.14 kg

DRUGS (5)
  1. LOSARTAN. [Concomitant]
     Active Substance: LOSARTAN
     Indication: HYPERTENSION
  2. LATANOPROST. [Concomitant]
     Active Substance: LATANOPROST
  3. CARVEDILOL. [Concomitant]
     Active Substance: CARVEDILOL
     Indication: PALPITATIONS
  4. BRIMONIDINE TARTRATE AND TIMOLOL MALEATE [Suspect]
     Active Substance: BRIMONIDINE TARTRATE\TIMOLOL MALEATE
     Indication: GLAUCOMA
     Dosage: 2 GTT, QD
     Route: 047
     Dates: start: 20160708, end: 201706
  5. LORAZEPAM. [Concomitant]
     Active Substance: LORAZEPAM

REACTIONS (6)
  - Headache [Not Recovered/Not Resolved]
  - Upper respiratory tract congestion [Not Recovered/Not Resolved]
  - Wheezing [Not Recovered/Not Resolved]
  - Stress [Not Recovered/Not Resolved]
  - Blood pressure increased [Not Recovered/Not Resolved]
  - Neoplasm progression [Not Recovered/Not Resolved]

NARRATIVE: CASE EVENT DATE: 2017
